FAERS Safety Report 18545506 (Version 5)
Quarter: 2022Q1

REPORT INFORMATION
  Report Type: Report from Study
  Country: MX (occurrence: MX)
  Receive Date: 20201125
  Receipt Date: 20220328
  Transmission Date: 20220423
  Serious: Yes (Other)
  Sender: FDA-Public Use
  Company Number: NVSC2020MX311925

PATIENT
  Age: 52 Year
  Sex: Female
  Weight: 90 kg

DRUGS (4)
  1. TASIGNA [Suspect]
     Active Substance: NILOTINIB
     Indication: Chronic myeloid leukaemia
     Dosage: 600 MG, QD
     Route: 048
  2. TASIGNA [Suspect]
     Active Substance: NILOTINIB
     Dosage: 300 MG, Q12H
     Route: 048
  3. TASIGNA [Suspect]
     Active Substance: NILOTINIB
     Dosage: 400 MG, Q12H
     Route: 065
  4. TASIGNA [Suspect]
     Active Substance: NILOTINIB
     Dosage: 2 DOSAGE FORM, Q12H
     Route: 048

REACTIONS (13)
  - COVID-19 [Recovering/Resolving]
  - Influenza [Recovering/Resolving]
  - General symptom [Recovering/Resolving]
  - Fall [Unknown]
  - General physical health deterioration [Unknown]
  - Cough [Unknown]
  - Pain [Not Recovered/Not Resolved]
  - Malaise [Unknown]
  - Body temperature increased [Unknown]
  - Disorientation [Unknown]
  - Chest discomfort [Unknown]
  - Injection site haemorrhage [Unknown]
  - Inappropriate schedule of product administration [Unknown]

NARRATIVE: CASE EVENT DATE: 20201106
